FAERS Safety Report 19586730 (Version 6)
Quarter: 2021Q3

REPORT INFORMATION
  Report Type: Report from Study
  Country: GB (occurrence: GB)
  Receive Date: 20210720
  Receipt Date: 20210902
  Transmission Date: 20211014
  Serious: Yes (Hospitalization, Other)
  Sender: FDA-Public Use
  Company Number: GB-GILEAD-2021-0541129

PATIENT
  Age: 68 Year
  Sex: Male

DRUGS (23)
  1. MORPHINE [Concomitant]
     Active Substance: MORPHINE
     Dosage: UNK
     Dates: start: 20210624
  2. FUROSEMIDE. [Concomitant]
     Active Substance: FUROSEMIDE
     Indication: PERIPHERAL SWELLING
  3. ONDANSETRON [Concomitant]
     Active Substance: ONDANSETRON
     Indication: VOMITING
  4. SACITUZUMAB GOVITECAN. [Suspect]
     Active Substance: SACITUZUMAB GOVITECAN
     Indication: TRANSITIONAL CELL CARCINOMA
     Dosage: 820 MG OTHER
     Route: 042
     Dates: start: 20210624, end: 20210704
  5. ATEZOLIZUMAB. [Suspect]
     Active Substance: ATEZOLIZUMAB
     Indication: TRANSITIONAL CELL CARCINOMA
     Dosage: 1200 MG, EVERY 3 WEEKS
     Route: 042
     Dates: start: 20210325
  6. ATEZOLIZUMAB. [Suspect]
     Active Substance: ATEZOLIZUMAB
     Dosage: 1200 MG, EVERY 3 WEEKS
     Route: 042
     Dates: start: 20210618, end: 20210704
  7. PARACETAMOL [Concomitant]
     Active Substance: ACETAMINOPHEN
     Indication: PAIN
     Dosage: 1 G, Q4HR
  8. RAMIPRIL. [Concomitant]
     Active Substance: RAMIPRIL
     Indication: HYPERTENSION
     Dosage: 1.25 MG, QD
     Dates: start: 20210618
  9. ONDANSETRON [Concomitant]
     Active Substance: ONDANSETRON
     Indication: NAUSEA
     Dosage: 8 MG, BID
     Dates: start: 20210628
  10. LEVOMEPROMAZINE [Concomitant]
     Active Substance: LEVOMEPROMAZINE
     Indication: VOMITING
  11. RAMIPRIL. [Concomitant]
     Active Substance: RAMIPRIL
     Indication: EJECTION FRACTION
  12. FUROSEMIDE. [Concomitant]
     Active Substance: FUROSEMIDE
     Indication: EJECTION FRACTION
     Dosage: 20 MG, QD
     Dates: start: 20210618
  13. RED BLOOD CELLS [Concomitant]
     Active Substance: HUMAN RED BLOOD CELL
  14. SACITUZUMAB GOVITECAN. [Suspect]
     Active Substance: SACITUZUMAB GOVITECAN
     Dosage: 820 MG OTHER
     Route: 042
     Dates: start: 20210618
  15. APIXABAN [Concomitant]
     Active Substance: APIXABAN
     Indication: ATRIAL FIBRILLATION
     Dosage: 5 MG, BID
     Dates: start: 20210408
  16. NORMAL SALINE [Concomitant]
     Active Substance: SODIUM CHLORIDE
     Dosage: UNK
     Dates: start: 20210704, end: 20210704
  17. BICARBONATE NA [Concomitant]
     Dosage: UNK
     Dates: start: 20210705, end: 20210705
  18. BICARBONATE NA [Concomitant]
     Dosage: UNK
     Dates: start: 20210705, end: 20210705
  19. LEVOMEPROMAZINE [Concomitant]
     Active Substance: LEVOMEPROMAZINE
     Indication: NAUSEA
     Dosage: 6 MG, QD
     Route: 048
     Dates: start: 20210601
  20. DOMPERIDONE [Concomitant]
     Active Substance: DOMPERIDONE
     Indication: VOMITING
     Dosage: 10 MG, TID
     Dates: start: 20210601, end: 20210625
  21. FORTIJUICE [Concomitant]
  22. BICARBONATE NA [Concomitant]
     Indication: ACUTE KIDNEY INJURY
     Dosage: UNK
     Dates: start: 20210704, end: 20210704
  23. NORMAL SALINE [Concomitant]
     Active Substance: SODIUM CHLORIDE
     Indication: DIARRHOEA
     Dosage: UNK
     Dates: start: 20210704, end: 20210704

REACTIONS (6)
  - Vomiting [Recovered/Resolved]
  - Atrial fibrillation [Recovered/Resolved]
  - Small intestinal obstruction [Recovered/Resolved]
  - Sepsis [Not Recovered/Not Resolved]
  - Acute kidney injury [Recovered/Resolved]
  - Aortic thrombosis [Not Recovered/Not Resolved]

NARRATIVE: CASE EVENT DATE: 20210702
